FAERS Safety Report 4486158-7 (Version None)
Quarter: 2004Q4

REPORT INFORMATION
  Report Type: 
  Country: None (occurrence: None)
  Receive Date: 20041026
  Receipt Date: 20041018
  Transmission Date: 20050328
  Serious: Yes (Life-Threatening, Hospitalization)
  Sender: FDA-Public Use
  Company Number: US-MERCK-0410USA02765

PATIENT
  Age: 45 Year
  Sex: Female

DRUGS (6)
  1. VIOXX [Suspect]
     Indication: ARTHRITIS
     Route: 048
     Dates: start: 20040301, end: 20040901
  2. TYLENOL [Concomitant]
     Route: 065
  3. ADVIL [Concomitant]
     Route: 065
  4. LORTAB [Concomitant]
     Route: 065
  5. PREVACID [Concomitant]
     Route: 065
  6. [THERAPY UNSPECIFIED] [Concomitant]
     Route: 065

REACTIONS (2)
  - CHEST PAIN [None]
  - HYPERTENSION [None]
